FAERS Safety Report 8612539-3 (Version None)
Quarter: 2012Q3

REPORT INFORMATION
  Report Type: 
  Country: None (occurrence: None)
  Receive Date: 20120822
  Receipt Date: 20111006
  Transmission Date: 20120928
  Serious: No
  Sender: FDA-Public Use
  Company Number: US-ASTRAZENECA-2011SE60042

PATIENT
  Age: 78 Year
  Sex: Male
  Weight: 73.9 kg

DRUGS (6)
  1. SYMBICORT [Suspect]
     Indication: DYSPNOEA
     Dosage: 2 PUFFS, BID
     Route: 055
     Dates: start: 20110801
  2. ALEVE [Concomitant]
  3. PLAVIX [Concomitant]
  4. COMBIVENT [Concomitant]
  5. DILTIAZEM [Concomitant]
  6. LISINOPRIL AND HYDROCHLOROTHIAZIDE [Concomitant]

REACTIONS (2)
  - MUSCLE SPASMS [None]
  - DYSURIA [None]
